FAERS Safety Report 23057313 (Version 1)
Quarter: 2023Q4

REPORT INFORMATION
  Report Type: Report from Study
  Country: AU (occurrence: None)
  Receive Date: 20231012
  Receipt Date: 20231012
  Transmission Date: 20240110
  Serious: Yes (Hospitalization)
  Sender: FDA-Public Use
  Company Number: AU-ROCHE-3385176

PATIENT
  Age: 27 Year
  Sex: Female
  Weight: 148.5 kg

DRUGS (14)
  1. GLOFITAMAB [Suspect]
     Active Substance: GLOFITAMAB
     Indication: Diffuse large B-cell lymphoma
     Dosage: ON 26/JUN/2023, MOST RECENT DOSE OF GLOFITAMAB ADMIN PRIOR TO SAE
     Route: 042
     Dates: start: 20230605, end: 20230814
  2. RITUXIMAB [Suspect]
     Active Substance: RITUXIMAB
     Indication: Diffuse large B-cell lymphoma
     Dosage: ON 19/JUN/2023, MOST RECENT DOSE OF RITUXIMAB ADMIN PRIOR TO SAE
     Route: 041
     Dates: start: 20230508, end: 20230807
  3. CYCLOPHOSPHAMIDE [Suspect]
     Active Substance: CYCLOPHOSPHAMIDE
     Indication: Diffuse large B-cell lymphoma
     Dosage: ON 19/JUN/2023, MOST RECENT DOSE OF CYCLOPHOSPHAMIDE PRIOR TO SAE.
     Route: 042
     Dates: start: 20230505, end: 20230807
  4. VINCRISTINE [Suspect]
     Active Substance: VINCRISTINE
     Indication: Diffuse large B-cell lymphoma
     Dosage: ON 19/JUN/2023, MOST RECENT DOSE OF VINCRISTINE ADMIN PRIOR TO SAE
     Route: 042
     Dates: start: 20230505, end: 20230807
  5. DOXORUBICIN [Suspect]
     Active Substance: DOXORUBICIN
     Indication: Diffuse large B-cell lymphoma
     Dosage: ON 19/JUN/2023, MOST RECENT DOSE OF DOXORUBICIN ADMIN PRIOR TO SAE
     Route: 042
     Dates: start: 20230505, end: 20230807
  6. PREDNISOLONE [Suspect]
     Active Substance: PREDNISOLONE
     Indication: Diffuse large B-cell lymphoma
     Dosage: ON 19/JUN/2023, MOST RECENT DOSE OF PREDNISOLONE ADMIN TO PRIOR TO SAE
     Route: 048
     Dates: start: 20230505, end: 20230807
  7. BACTRIM [Concomitant]
     Active Substance: SULFAMETHOXAZOLE\TRIMETHOPRIM
     Dosage: 160/800 MG
     Route: 048
     Dates: start: 20230505
  8. VALACYCLOVIR HYDROCHLORIDE [Concomitant]
     Active Substance: VALACYCLOVIR HYDROCHLORIDE
     Route: 048
     Dates: start: 20230505
  9. PANTOPRAZOLE [Concomitant]
     Active Substance: PANTOPRAZOLE
     Route: 048
     Dates: start: 20230505
  10. ESCITALOPRAM [Concomitant]
     Active Substance: ESCITALOPRAM OXALATE
     Indication: Anxiety
     Route: 048
  11. NORETHINDRONE [Concomitant]
     Active Substance: NORETHINDRONE
     Route: 048
     Dates: start: 20230518
  12. HYDROXOCOBALAMIN [Concomitant]
     Active Substance: HYDROXOCOBALAMIN
     Indication: Vitamin D deficiency
     Route: 030
     Dates: start: 20230524
  13. AMITRIPTYLINE [Concomitant]
     Active Substance: AMITRIPTYLINE
     Route: 048
     Dates: start: 20230803
  14. METOPROLOL [Concomitant]
     Active Substance: METOPROLOL
     Route: 048
     Dates: start: 20230807

REACTIONS (2)
  - Vascular device infection [Recovered/Resolved]
  - Diverticulitis [Recovered/Resolved]

NARRATIVE: CASE EVENT DATE: 20230709
